FAERS Safety Report 7901159-1 (Version None)
Quarter: 2011Q4

REPORT INFORMATION
  Report Type: 
  Country: None (occurrence: None)
  Receive Date: 20111108
  Receipt Date: 20111101
  Transmission Date: 20120403
  Serious: Yes (Other)
  Sender: FDA-Public Use
  Company Number: US-CEPHALON-2011004576

PATIENT
  Sex: Female

DRUGS (8)
  1. METFORMIN HCL [Concomitant]
  2. BUSPAR [Concomitant]
  3. NASONEX [Concomitant]
  4. CALCIUM [Concomitant]
  5. LEXAPRO [Concomitant]
  6. SYNTHROID [Concomitant]
  7. PROVIGIL [Suspect]
     Route: 064
  8. MULTI-VITAMINS [Concomitant]

REACTIONS (1)
  - ACOUSTIC STIMULATION TESTS ABNORMAL [None]
